FAERS Safety Report 5611273-1 (Version None)
Quarter: 2008Q1

REPORT INFORMATION
  Report Type: 
  Country: None (occurrence: None)
  Receive Date: 20080201
  Receipt Date: 20080130
  Transmission Date: 20080703
  Serious: Yes (Hospitalization)
  Sender: FDA-Public Use
  Company Number: FR-WYE-G00977808

PATIENT
  Age: 65 Year
  Sex: Male

DRUGS (1)
  1. RHINADVIL [Suspect]
     Indication: RHINITIS
     Dosage: UNKNOWN
     Route: 048
     Dates: start: 20050101, end: 20050101

REACTIONS (2)
  - MEDICATION ERROR [None]
  - URINARY RETENTION [None]
